FAERS Safety Report 9776965 (Version 1)
Quarter: 2013Q4

REPORT INFORMATION
  Report Type: Spontaneous
  Country: US (occurrence: US)
  Receive Date: 20131221
  Receipt Date: 20131221
  Transmission Date: 20140711
  Serious: Yes (Other)
  Sender: FDA-Public Use
  Company Number: 2013SP003500

PATIENT
  Sex: 0

DRUGS (1)
  1. VANCOMYCIN [Suspect]
     Indication: PRODUCT USED FOR UNKNOWN INDICATION
     Dates: start: 201212

REACTIONS (5)
  - Renal impairment [Unknown]
  - Renal tubular disorder [Unknown]
  - Nephropathy toxic [Unknown]
  - Blood creatinine increased [Unknown]
  - Drug level increased [Unknown]
